FAERS Safety Report 9835046 (Version 2)
Quarter: 2014Q3

REPORT INFORMATION
  Report Type: Spontaneous
  Country: US (occurrence: US)
  Receive Date: 20140122
  Receipt Date: 20140723
  Transmission Date: 20150326
  Serious: Yes (Hospitalization, Other)
  Sender: FDA-Public Use
  Company Number: US-009507513-1401USA009878

PATIENT
  Sex: Female

DRUGS (1)
  1. NUVARING [Suspect]
     Active Substance: ETHINYL ESTRADIOL\ETONOGESTREL
     Indication: CONTRACEPTION
     Dosage: INSERT FOR 3 WEEKS
     Route: 067
     Dates: end: 20121010

REACTIONS (5)
  - Hypothyroidism [Unknown]
  - Anxiety [Unknown]
  - Cerebral haemorrhage [Recovered/Resolved with Sequelae]
  - Rheumatoid arthritis [Unknown]
  - Intracranial venous sinus thrombosis [Recovered/Resolved with Sequelae]

NARRATIVE: CASE EVENT DATE: 201210
